FAERS Safety Report 5893068-7 (Version None)
Quarter: 2008Q3

REPORT INFORMATION
  Report Type: 
  Country: None (occurrence: None)
  Receive Date: 20080923
  Receipt Date: 20080507
  Transmission Date: 20090109
  Serious: No
  Sender: FDA-Public Use
  Company Number: US-ASTRAZENECA-2006UW20975

PATIENT
  Age: 12641 Day
  Sex: Female
  Weight: 45.5 kg

DRUGS (8)
  1. SEROQUEL [Suspect]
     Indication: SLEEP DISORDER
     Route: 048
     Dates: start: 19980101, end: 20020101
  2. SEROQUEL [Suspect]
     Indication: HALLUCINATION
     Route: 048
     Dates: start: 19980101, end: 20020101
  3. HALDOL [Concomitant]
     Dates: start: 20070210
  4. RISPERDAL [Concomitant]
  5. ZYPREXA [Concomitant]
  6. TRAZODONE HCL [Concomitant]
  7. VISARIL [Concomitant]
  8. PROPRANOLOL [Concomitant]

REACTIONS (6)
  - CARDIAC DISORDER [None]
  - HYPERGLYCAEMIA [None]
  - HYPERTENSION [None]
  - MALAISE [None]
  - TOOTH INFECTION [None]
  - URINARY TRACT INFECTION [None]
